FAERS Safety Report 5889068-3 (Version None)
Quarter: 2008Q3

REPORT INFORMATION
  Report Type: 
  Country: None (occurrence: None)
  Receive Date: 20080919
  Receipt Date: 20071218
  Transmission Date: 20090109
  Serious: No
  Sender: FDA-Public Use
  Company Number: US-KINGPHARMUSA00001-K200701627

PATIENT

DRUGS (2)
  1. SONATA [Suspect]
  2. LUNESTA [Suspect]
     Dosage: 2 MG, UNK
     Route: 048
     Dates: start: 20070927, end: 20071006

REACTIONS (2)
  - DRUG INEFFECTIVE [None]
  - SKIN REACTION [None]
